FAERS Safety Report 22350872 (Version 1)
Quarter: 2023Q2

REPORT INFORMATION
  Report Type: Spontaneous
  Country: US (occurrence: None)
  Receive Date: 20230521
  Receipt Date: 20230521
  Transmission Date: 20230721
  Serious: Yes (Hospitalization, Disabling)
  Sender: FDA-Public Use
  Company Number: None

PATIENT
  Age: 30 Year
  Sex: Female
  Weight: 97.07 kg

DRUGS (1)
  1. MIRENA [Suspect]
     Active Substance: LEVONORGESTREL
     Dates: start: 20220315, end: 20230417

REACTIONS (8)
  - Panic attack [None]
  - Anxiety [None]
  - Depression [None]
  - Derealisation [None]
  - Depersonalisation/derealisation disorder [None]
  - Brain fog [None]
  - Dizziness [None]
  - Gastrointestinal disorder [None]

NARRATIVE: CASE EVENT DATE: 20230109
